FAERS Safety Report 10207287 (Version 2)
Quarter: 2014Q2

REPORT INFORMATION
  Report Type: Spontaneous
  Country: JP (occurrence: JP)
  Receive Date: 20140530
  Receipt Date: 20140609
  Transmission Date: 20141212
  Serious: Yes (Other)
  Sender: FDA-Public Use
  Company Number: JP-SA-2014SA053277

PATIENT
  Age: 86 Year
  Sex: Male
  Weight: 66 kg

DRUGS (9)
  1. PANALDINE [Suspect]
     Indication: THROMBOSIS PROPHYLAXIS
     Route: 048
     Dates: end: 20140418
  2. LASIX [Suspect]
     Indication: HYPERTENSION
     Route: 048
  3. LASIX [Suspect]
     Indication: POLYURIA
     Route: 048
  4. BAYASPIRIN [Suspect]
     Indication: THROMBOSIS PROPHYLAXIS
     Route: 048
     Dates: end: 20140418
  5. ARTIST [Concomitant]
     Indication: HYPERTENSION
     Route: 048
  6. ATORVASTATIN [Concomitant]
     Indication: HYPERLIPIDAEMIA
     Route: 048
  7. MICARDIS [Concomitant]
     Indication: HYPERTENSION
     Route: 048
  8. TEPRENONE [Concomitant]
     Indication: GASTRITIS
     Route: 048
  9. TEPRENONE [Concomitant]
     Indication: GASTRIC ULCER
     Route: 048

REACTIONS (2)
  - Femur fracture [Recovered/Resolved]
  - Osteoporosis [Unknown]
